FAERS Safety Report 4503549-6 (Version None)
Quarter: 2004Q4

REPORT INFORMATION
  Report Type: 
  Country: None (occurrence: None)
  Receive Date: 20041112
  Receipt Date: 20041101
  Transmission Date: 20050328
  Serious: Yes (Life-Threatening, Other)
  Sender: FDA-Public Use
  Company Number: FR-2004-033601

PATIENT
  Age: 60 Year
  Sex: Male
  Weight: 51 kg

DRUGS (4)
  1. FLUDARA [Suspect]
     Indication: CHRONIC LYMPHOCYTIC LEUKAEMIA
     Dosage: 25 MG/M2, CYCLES X 3 DAYS, INTRAVENOUS
     Route: 042
     Dates: start: 20031208, end: 20040331
  2. CYCLOPHOSPHAMIDE     (CYLCLOPHOSPHAMIDE) [Suspect]
     Indication: CHRONIC LYMPHOCYTIC LEUKAEMIA
     Dosage: 250 MG/M2, CYCLES X 3 DAYS, INTRAVENOUS
     Route: 042
     Dates: start: 20031208, end: 20040331
  3. FILGRASTIM           (FILGRASTIM) [Concomitant]
  4. ERYTHROPOIETIN          (ERYTHROPOIETIN) [Concomitant]

REACTIONS (9)
  - ABDOMINAL DISTENSION [None]
  - ACQUIRED PYLORIC STENOSIS [None]
  - CYTOMEGALOVIRUS INFECTION [None]
  - DIFFUSE LARGE B-CELL LYMPHOMA [None]
  - EPSTEIN-BARR VIRUS INFECTION [None]
  - FEBRILE BONE MARROW APLASIA [None]
  - HEPATIC NEOPLASM [None]
  - METASTASES TO LIVER [None]
  - NEOPLASM MALIGNANT [None]
